FAERS Safety Report 4360220-1 (Version None)
Quarter: 2004Q2

REPORT INFORMATION
  Report Type: 
  Country: None (occurrence: None)
  Receive Date: 20040513
  Receipt Date: 20040505
  Transmission Date: 20050107
  Serious: No
  Sender: FDA-Public Use
  Company Number: 2004-115777-NL

PATIENT
  Age: 33 Year
  Sex: Female

DRUGS (1)
  1. MIRTAZAPINE [Suspect]
     Indication: INSOMNIA
     Dosage: 15 MG BID/30 MG QD ORAL
     Route: 048
     Dates: start: 20030218, end: 20040201

REACTIONS (1)
  - SEROTONIN SYNDROME [None]
